FAERS Safety Report 9726083 (Version 2)
Quarter: 2013Q4

REPORT INFORMATION
  Report Type: Spontaneous
  Country: IN (occurrence: IN)
  Receive Date: 20131203
  Receipt Date: 20131207
  Transmission Date: 20140711
  Serious: Yes (Death, Other)
  Sender: FDA-Public Use
  Company Number: IN-009507513-1312IND000720

PATIENT
  Age: 58 Year
  Sex: Female

DRUGS (2)
  1. JANUMET [Suspect]
     Dosage: UNK, BID, , STRENGTH-50/500
     Route: 048
  2. INSULIN [Concomitant]
     Dosage: UNK

REACTIONS (2)
  - Renal failure [Fatal]
  - Blood glucose abnormal [Unknown]
